FAERS Safety Report 12503261 (Version 1)
Quarter: 2016Q2

REPORT INFORMATION
  Report Type: Spontaneous
  Country: US (occurrence: US)
  Receive Date: 20160628
  Receipt Date: 20160628
  Transmission Date: 20160815
  Serious: No
  Sender: FDA-Public Use
  Company Number: US-FERRINGPH-2015FE03979

PATIENT
  Sex: Female
  Weight: 61.22 kg

DRUGS (4)
  1. BRAVELLE [Suspect]
     Active Substance: FOLLITROPIN\UROFOLLITROPIN
     Indication: IN VITRO FERTILISATION
     Dosage: UNK, DAILY
     Route: 058
     Dates: start: 201506, end: 201507
  2. LEUPROLIDE                         /00726901/ [Concomitant]
  3. BRAVELLE [Suspect]
     Active Substance: FOLLITROPIN\UROFOLLITROPIN
     Dosage: UNK, DAILY
     Route: 058
     Dates: start: 201506, end: 201507
  4. MENOPUR [Concomitant]
     Active Substance: FOLLICLE STIMULATING HORMONE BETA POLYPEPTIDE\LUTROPIN ALFA
     Indication: IN VITRO FERTILISATION

REACTIONS (1)
  - Drug ineffective [Unknown]
